FAERS Safety Report 23841930 (Version 1)
Quarter: 2024Q2

REPORT INFORMATION
  Report Type: Spontaneous
  Country: US (occurrence: US)
  Receive Date: 20240510
  Receipt Date: 20240510
  Transmission Date: 20240716
  Serious: No
  Sender: FDA-Public Use
  Company Number: US-002147023-NVSC2024US097836

PATIENT
  Sex: Female

DRUGS (1)
  1. KESIMPTA [Suspect]
     Active Substance: OFATUMUMAB
     Indication: Product used for unknown indication
     Dosage: UNK
     Route: 065

REACTIONS (7)
  - Pharyngitis streptococcal [Unknown]
  - Illness [Unknown]
  - COVID-19 [Unknown]
  - Herpes zoster [Unknown]
  - Abdominal discomfort [Unknown]
  - Oropharyngeal pain [Unknown]
  - Cough [Unknown]
